FAERS Safety Report 25660560 (Version 1)
Quarter: 2025Q3

REPORT INFORMATION
  Report Type: Spontaneous
  Country: US (occurrence: None)
  Receive Date: 20250807
  Receipt Date: 20250807
  Transmission Date: 20251021
  Serious: Yes (Death)
  Sender: FDA-CTU
  Company Number: None

PATIENT
  Age: 16 Year
  Sex: Male

DRUGS (1)
  1. THALOMID [Suspect]
     Active Substance: THALIDOMIDE
     Indication: Osteosarcoma
     Dosage: FREQUENCY : 4 TIMES A DAY;?
     Route: 048
     Dates: start: 20250224, end: 20250702

REACTIONS (11)
  - Seizure [None]
  - Post procedural complication [None]
  - Oedema [None]
  - Pain [None]
  - Discomfort [None]
  - Platelet count decreased [None]
  - Epistaxis [None]
  - Streptococcal bacteraemia [None]
  - Hypothyroidism [None]
  - Respiratory distress [None]
  - Stenotrophomonas infection [None]

NARRATIVE: CASE EVENT DATE: 20250702
